FAERS Safety Report 11805254 (Version 1)
Quarter: 2015Q4

REPORT INFORMATION
  Report Type: Other
  Country: GB (occurrence: GB)
  Receive Date: 20151206
  Receipt Date: 20151206
  Transmission Date: 20160305
  Serious: Yes (Other)
  Sender: FDA-Public Use
  Company Number: GB-MYLANLABS-2015M1041645

PATIENT

DRUGS (4)
  1. RENNIE                             /01739201/ [Concomitant]
     Dosage: UNK (FAIRLY REGULARLY)
  2. PARACETAMOL [Concomitant]
     Active Substance: ACETAMINOPHEN
     Dosage: UNK (OCCASIONALLY)
  3. OMEPRAZOLE. [Suspect]
     Active Substance: OMEPRAZOLE
     Indication: GASTROOESOPHAGEAL REFLUX DISEASE
     Dosage: 20 MG, UNK
     Route: 048
     Dates: start: 20121012, end: 20151001
  4. IBUPROFEN. [Concomitant]
     Active Substance: IBUPROFEN
     Indication: MUSCULOSKELETAL STIFFNESS
     Dosage: UNK

REACTIONS (7)
  - Swelling face [Recovered/Resolved]
  - Rash [Recovering/Resolving]
  - Urethritis noninfective [Recovered/Resolved]
  - Micturition urgency [Recovered/Resolved]
  - Eyelid oedema [Recovered/Resolved]
  - Lip swelling [Recovered/Resolved]
  - Diarrhoea [Recovered/Resolved]

NARRATIVE: CASE EVENT DATE: 20131001
